FAERS Safety Report 8425961-5 (Version None)
Quarter: 2012Q2

REPORT INFORMATION
  Report Type: 
  Country: None (occurrence: None)
  Receive Date: 20120611
  Receipt Date: 20120601
  Transmission Date: 20120825
  Serious: Yes (Other)
  Sender: FDA-Public Use
  Company Number: JP-JNJFOC-20091005888

PATIENT
  Sex: Female
  Weight: 45 kg

DRUGS (104)
  1. DOXORUBICIN HCL [Suspect]
     Dosage: CYCLE 8
     Route: 042
     Dates: start: 20100421, end: 20100421
  2. VITAMIN B12 [Concomitant]
     Indication: PRODUCT USED FOR UNKNOWN INDICATION
     Route: 048
  3. CEFAZOLIN SODIUM [Concomitant]
     Indication: PRODUCT USED FOR UNKNOWN INDICATION
     Route: 048
  4. PYDOXAL [Concomitant]
     Indication: PROPHYLAXIS
     Route: 048
     Dates: start: 20090710, end: 20090903
  5. PREDNISOLONE [Concomitant]
     Route: 048
     Dates: start: 20090714, end: 20090714
  6. PREDNISOLONE [Concomitant]
     Route: 048
     Dates: start: 20090814, end: 20090814
  7. PREDNISOLONE [Concomitant]
     Route: 048
     Dates: start: 20090914, end: 20090917
  8. PREDNISOLONE [Concomitant]
     Route: 048
     Dates: start: 20091027, end: 20091027
  9. PREDNISOLONE [Concomitant]
     Route: 048
     Dates: start: 20091213, end: 20091213
  10. PREDNISOLONE [Concomitant]
     Route: 048
     Dates: start: 20100425, end: 20100426
  11. PREDNISOLONE [Concomitant]
     Route: 048
     Dates: start: 20100701, end: 20100704
  12. ESTAZOLAM [Concomitant]
     Route: 048
     Dates: start: 20110207
  13. PENTAZOCINE LACTATE [Concomitant]
     Indication: OVARIAN CANCER RECURRENT
     Route: 065
     Dates: start: 20101223, end: 20101223
  14. NEUTROGIN [Concomitant]
     Route: 058
     Dates: start: 20091110, end: 20091111
  15. PREDNISOLONE [Concomitant]
     Route: 048
     Dates: start: 20090715, end: 20090715
  16. PREDNISOLONE [Concomitant]
     Route: 048
     Dates: start: 20090919, end: 20090919
  17. PREDNISOLONE [Concomitant]
     Route: 048
     Dates: start: 20100129, end: 20100201
  18. PREDNISOLONE [Concomitant]
     Route: 048
     Dates: start: 20100327, end: 20100328
  19. FLUMARIN [Concomitant]
     Route: 042
     Dates: start: 20100714, end: 20100719
  20. CYTOTEC [Concomitant]
     Indication: PROPHYLAXIS
     Route: 048
     Dates: start: 20101215
  21. MOTILIUM [Concomitant]
     Route: 054
     Dates: start: 20100103
  22. GLYCENON [Concomitant]
     Indication: OVARIAN CANCER RECURRENT
     Route: 042
     Dates: start: 20101108, end: 20101224
  23. NEUTROGIN [Concomitant]
     Route: 058
     Dates: start: 20100830, end: 20100831
  24. NEUTROGIN [Concomitant]
     Route: 058
     Dates: start: 20091225, end: 20091226
  25. DOXORUBICIN HCL [Suspect]
     Dosage: CYCLE 5
     Route: 042
     Dates: start: 20091208, end: 20091208
  26. PREDNISOLONE [Concomitant]
     Route: 048
     Dates: start: 20090815, end: 20090815
  27. PREDNISOLONE [Concomitant]
     Route: 048
     Dates: start: 20090918, end: 20090918
  28. PREDNISOLONE [Concomitant]
     Route: 048
     Dates: start: 20100421, end: 20100424
  29. HUSTAZOL [Concomitant]
     Indication: PRODUCT USED FOR UNKNOWN INDICATION
     Route: 048
     Dates: start: 20090810, end: 20090814
  30. POLARAMINE [Concomitant]
     Route: 048
     Dates: start: 20100323, end: 20100409
  31. NEUTROGIN [Concomitant]
     Route: 058
     Dates: start: 20101001, end: 20101002
  32. NEUTROGIN [Concomitant]
     Route: 058
     Dates: start: 20091002, end: 20091003
  33. NEUTROGIN [Concomitant]
     Route: 058
     Dates: start: 20100416, end: 20100416
  34. DOXORUBICIN HCL [Suspect]
     Dosage: CYCLE 4
     Route: 042
     Dates: start: 20091023, end: 20091023
  35. PREDNISOLONE [Concomitant]
     Route: 048
     Dates: start: 20091028, end: 20091028
  36. PREDNISOLONE [Concomitant]
     Route: 048
     Dates: start: 20100202, end: 20100202
  37. PREDNISOLONE [Concomitant]
     Route: 048
     Dates: start: 20100203, end: 20100203
  38. KENALOG [Concomitant]
     Indication: STOMATITIS
     Route: 049
     Dates: start: 20100507, end: 20100518
  39. GENTAMICIN SULFATE [Concomitant]
     Indication: ECZEMA INFECTED
     Route: 061
     Dates: start: 20091106, end: 20091108
  40. SAIREI-TO [Concomitant]
     Route: 048
     Dates: start: 20100518
  41. FLUMARIN [Concomitant]
     Route: 042
     Dates: start: 20101130, end: 20100101
  42. PRIMPERAN TAB [Concomitant]
     Indication: OVARIAN CANCER RECURRENT
     Route: 042
     Dates: start: 20101224, end: 20101224
  43. LECICARBON [Concomitant]
     Route: 054
     Dates: start: 20100930
  44. FUNGIZONE [Concomitant]
     Route: 048
     Dates: start: 20101122, end: 20101218
  45. HALOPERIDOL [Concomitant]
     Indication: OVARIAN CANCER RECURRENT
     Route: 048
     Dates: start: 20100120
  46. MAXIPIME [Concomitant]
     Indication: OVARIAN CANCER RECURRENT
     Route: 042
     Dates: start: 20101108, end: 20101114
  47. NEUTROGIN [Concomitant]
     Route: 058
     Dates: start: 20101108, end: 20101110
  48. NEUTROGIN [Concomitant]
     Route: 058
     Dates: start: 20100215, end: 20100218
  49. DOXORUBICIN HCL [Suspect]
     Dosage: CYCLE 9
     Route: 042
     Dates: start: 20100601, end: 20100601
  50. DOXORUBICIN HCL [Suspect]
     Dosage: CYCLE 2
     Route: 042
     Dates: start: 20090810, end: 20090810
  51. PANCREAZE [Concomitant]
     Indication: PRODUCT USED FOR UNKNOWN INDICATION
     Route: 048
  52. PREDNISOLONE [Concomitant]
     Route: 048
     Dates: start: 20091212, end: 20091212
  53. PREDNISOLONE [Concomitant]
     Route: 048
     Dates: start: 20100323, end: 20100326
  54. PREDNISOLONE [Concomitant]
     Route: 048
     Dates: start: 20101025, end: 20101026
  55. RESTAMIN [Concomitant]
     Indication: PRODUCT USED FOR UNKNOWN INDICATION
     Route: 061
     Dates: start: 20100323, end: 20100409
  56. FLOMOX [Concomitant]
     Route: 048
     Dates: start: 20100712, end: 20100714
  57. METHYLPREDNISOLONE SODIUM SUCCINATE [Concomitant]
     Indication: PROPHYLAXIS
     Route: 042
     Dates: start: 20100928
  58. NEUTROGIN [Concomitant]
     Route: 058
     Dates: start: 20100720, end: 20100722
  59. NEUTROGIN [Concomitant]
     Route: 058
     Dates: start: 20100409, end: 20100410
  60. NEUTROGIN [Concomitant]
     Route: 058
     Dates: start: 20090727, end: 20090729
  61. BETAMETHASONE [Concomitant]
     Route: 048
     Dates: start: 20101224
  62. DOXORUBICIN HCL [Suspect]
     Dosage: CYCLE 11
     Route: 042
     Dates: start: 20100812, end: 20100812
  63. DOXORUBICIN HCL [Suspect]
     Dosage: CYCLE 6
     Route: 042
     Dates: start: 20100129, end: 20100129
  64. RABEPRAZOLE SODIUM [Concomitant]
     Indication: PRODUCT USED FOR UNKNOWN INDICATION
     Route: 048
  65. JUZENTAIHOTO [Concomitant]
     Indication: PRODUCT USED FOR UNKNOWN INDICATION
     Route: 048
  66. PREDNISOLONE [Concomitant]
     Route: 048
     Dates: start: 20090810, end: 20090813
  67. PREDNISOLONE [Concomitant]
     Route: 048
     Dates: start: 20091208, end: 20091211
  68. PREDNISOLONE [Concomitant]
     Route: 048
     Dates: start: 20100601, end: 20100604
  69. PREDNISOLONE [Concomitant]
     Route: 048
     Dates: start: 20100605, end: 20100606
  70. PREDNISOLONE [Concomitant]
     Route: 048
     Dates: start: 20100705, end: 20100706
  71. KENALOG [Concomitant]
     Route: 049
     Dates: start: 20091005, end: 20091023
  72. LAXOBERON [Concomitant]
     Route: 048
     Dates: start: 20100716
  73. FLUMARIN [Concomitant]
     Route: 042
     Dates: start: 20100714, end: 20100719
  74. MAGCOROL P [Concomitant]
     Route: 048
     Dates: start: 20100929, end: 20100929
  75. DEPAS [Concomitant]
     Indication: INSOMNIA
     Route: 048
     Dates: start: 20101119
  76. NEUTROGIN [Concomitant]
     Route: 058
     Dates: start: 20100510, end: 20100511
  77. NEUTROGIN [Concomitant]
     Route: 058
     Dates: start: 20090831, end: 20090901
  78. DOXORUBICIN HCL [Suspect]
     Dosage: CYCLE 10
     Route: 042
     Dates: start: 20100701, end: 20100701
  79. DOXORUBICIN HCL [Suspect]
     Dosage: CYCLE 13
     Route: 042
     Dates: start: 20101021, end: 20101021
  80. PREDNISOLONE [Concomitant]
     Indication: PROPHYLAXIS
     Route: 048
     Dates: start: 20090710, end: 20090713
  81. PREDNISOLONE [Concomitant]
     Route: 048
     Dates: start: 20091023, end: 20091026
  82. PREDNISOLONE [Concomitant]
     Route: 048
     Dates: start: 20100812, end: 20100815
  83. PREDNISOLONE [Concomitant]
     Route: 048
     Dates: start: 20100816, end: 20100817
  84. PREDNISOLONE [Concomitant]
     Route: 048
     Dates: start: 20100909, end: 20100912
  85. PREDNISOLONE [Concomitant]
     Route: 048
     Dates: start: 20101021, end: 20101024
  86. GAMOFA [Concomitant]
     Indication: OVARIAN CANCER RECURRENT
     Route: 042
     Dates: start: 20101109, end: 20101115
  87. GAMOFA [Concomitant]
     Route: 042
     Dates: start: 20100714, end: 20100719
  88. LOXOPROFEN [Concomitant]
     Route: 048
     Dates: start: 20101215
  89. BETAMETHASONE SODIUM PHOSPHATE [Concomitant]
     Route: 042
     Dates: start: 20101113, end: 20101125
  90. FAMOTIDINE [Concomitant]
     Route: 048
     Dates: start: 20101224
  91. MAGMITT [Concomitant]
     Route: 048
     Dates: start: 20110126
  92. NEUTROGIN [Concomitant]
     Indication: PROPHYLAXIS
     Route: 058
     Dates: start: 20100618, end: 20100619
  93. DOXORUBICIN HCL [Suspect]
     Indication: OVARIAN CANCER RECURRENT
     Dosage: CYCLE 7
     Route: 042
     Dates: start: 20100323, end: 20100323
  94. DOXORUBICIN HCL [Suspect]
     Dosage: CYCLE 12
     Route: 042
     Dates: start: 20100909, end: 20100909
  95. DOXORUBICIN HCL [Suspect]
     Dosage: CYCLE 3
     Route: 042
     Dates: start: 20090914, end: 20090914
  96. DOXORUBICIN HCL [Suspect]
     Dosage: CYCLE 1
     Route: 042
     Dates: start: 20090710, end: 20090710
  97. HEAVY MAGNESIUM OXIDE [Concomitant]
     Indication: PRODUCT USED FOR UNKNOWN INDICATION
     Route: 048
  98. PREDNISOLONE [Concomitant]
     Route: 048
     Dates: start: 20100913, end: 20100914
  99. PRIMPERAN TAB [Concomitant]
     Route: 042
     Dates: start: 20100715, end: 20100719
  100. WATER [Concomitant]
     Route: 048
     Dates: start: 20101122, end: 20101218
  101. BETAMETHASONE SODIUM PHOSPHATE [Concomitant]
     Route: 042
     Dates: start: 20101108, end: 20101112
  102. ZOLPIDEM [Concomitant]
     Route: 048
     Dates: start: 20101227
  103. HALOPERIDOL [Concomitant]
     Route: 030
     Dates: start: 20110208, end: 20110208
  104. ATARAX [Concomitant]
     Indication: OVARIAN CANCER RECURRENT
     Route: 030
     Dates: start: 20110208, end: 20110208

REACTIONS (4)
  - PALPITATIONS [None]
  - CYSTITIS [None]
  - ARRHYTHMIA [None]
  - WHITE BLOOD CELL COUNT DECREASED [None]
